FAERS Safety Report 7370303-X (Version None)
Quarter: 2011Q1

REPORT INFORMATION
  Report Type: 
  Country: None (occurrence: None)
  Receive Date: 20110323
  Receipt Date: 20110318
  Transmission Date: 20110831
  Serious: Yes (Other)
  Sender: FDA-Public Use
  Company Number: PHHO2009CA11645

PATIENT
  Sex: Female
  Weight: 68 kg

DRUGS (1)
  1. FTY 720 [Suspect]
     Indication: MULTIPLE SCLEROSIS
     Dosage: 1.25 MG, UNK
     Route: 048
     Dates: start: 20040217, end: 20090922

REACTIONS (4)
  - SKIN LESION [None]
  - BASAL CELL CARCINOMA [None]
  - SKIN ULCER [None]
  - SKIN NEOPLASM EXCISION [None]
